FAERS Safety Report 19928432 (Version 2)
Quarter: 2021Q4

REPORT INFORMATION
  Report Type: Spontaneous
  Country: US (occurrence: US)
  Receive Date: 20211007
  Receipt Date: 20211116
  Transmission Date: 20220303
  Serious: Yes (Death)
  Sender: FDA-Public Use
  Company Number: US-CELGENE-USA-20211001521

PATIENT
  Sex: Male

DRUGS (1)
  1. REVLIMID [Suspect]
     Active Substance: LENALIDOMIDE
     Indication: Central nervous system lymphoma
     Dosage: 25 MILLIGRAM
     Route: 048
     Dates: start: 202108, end: 20210917

REACTIONS (1)
  - Central nervous system lymphoma [Fatal]

NARRATIVE: CASE EVENT DATE: 20210101
